FAERS Safety Report 15741635 (Version 1)
Quarter: 2018Q4

REPORT INFORMATION
  Report Type: Report from Study
  Country: ES (occurrence: ES)
  Receive Date: 20181219
  Receipt Date: 20181219
  Transmission Date: 20190205
  Serious: Yes (Other)
  Sender: FDA-Public Use
  Company Number: ES-MYLANLABS-2018M1094282

PATIENT
  Age: 87 Year
  Sex: Female

DRUGS (5)
  1. ZALDIAR [Concomitant]
     Active Substance: ACETAMINOPHEN\TRAMADOL HYDROCHLORIDE
     Dosage: 1-1-1
     Route: 048
     Dates: start: 20170314
  2. HYDROCHLOROTHIAZIDE/IRBESARTAN [Suspect]
     Active Substance: HYDROCHLOROTHIAZIDE\IRBESARTAN
     Indication: PRODUCT USED FOR UNKNOWN INDICATION
     Dosage: 1-0-0
     Route: 048
     Dates: start: 20170314, end: 20171128
  3. IRBESARTAN. [Interacting]
     Active Substance: IRBESARTAN
     Indication: PRODUCT USED FOR UNKNOWN INDICATION
     Dosage: 1-0-0
     Route: 048
     Dates: start: 20120101
  4. ORFIDAL [Concomitant]
     Active Substance: LORAZEPAM
     Dosage: 1 CP NOCHE
     Route: 048
     Dates: start: 20170314, end: 20171128
  5. CONDROSAN [Concomitant]
     Dosage: 1-0-0
     Route: 048
     Dates: start: 20170314

REACTIONS (3)
  - Drug interaction [Unknown]
  - Hyperkalaemia [Recovered/Resolved]
  - Acute kidney injury [Recovered/Resolved]

NARRATIVE: CASE EVENT DATE: 20171128
